FAERS Safety Report 23492301 (Version 1)
Quarter: 2024Q1

REPORT INFORMATION
  Report Type: Report from Study
  Country: US (occurrence: US)
  Receive Date: 20240207
  Receipt Date: 20240207
  Transmission Date: 20240409
  Serious: Yes (Hospitalization, Other)
  Sender: FDA-Public Use
  Company Number: US-UCBSA-2023050018

PATIENT
  Age: 14 Year
  Sex: Male
  Weight: 26.8 kg

DRUGS (3)
  1. FINTEPLA [Suspect]
     Active Substance: FENFLURAMINE
     Indication: Lennox-Gastaut syndrome
     Dosage: 4 MILLILITER, 2X/DAY (BID)
     Dates: start: 20230630
  2. FINTEPLA [Suspect]
     Active Substance: FENFLURAMINE
     Dosage: 0.66 MILLIGRAM/KILOGRAM/DAY (17.6 MILLIGRAM PER DAY)
     Dates: start: 202306
  3. FINTEPLA [Suspect]
     Active Substance: FENFLURAMINE
     Dosage: 4 MILLILITER, 2X/DAY (BID)

REACTIONS (4)
  - Hip arthroplasty [Recovered/Resolved]
  - Arthritis [Recovered/Resolved]
  - Knee operation [Recovered/Resolved]
  - Aortic valve incompetence [Not Recovered/Not Resolved]

NARRATIVE: CASE EVENT DATE: 20231013
